FAERS Safety Report 24762559 (Version 1)
Quarter: 2024Q4

REPORT INFORMATION
  Report Type: Spontaneous
  Country: ES (occurrence: ES)
  Receive Date: 20241221
  Receipt Date: 20241221
  Transmission Date: 20250114
  Serious: Yes (Life-Threatening, Other)
  Sender: AMGEN
  Company Number: ES-AMGEN-ESPSP2024250325

PATIENT

DRUGS (3)
  1. PANITUMUMAB [Suspect]
     Active Substance: PANITUMUMAB
     Indication: Colorectal cancer
     Dosage: UNK, 1ST-LINE TREATMENT
     Route: 065
  2. LEUCOVORIN [Suspect]
     Active Substance: LEUCOVORIN\LEUCOVORIN CALCIUM
     Indication: Colorectal cancer
     Dosage: UNK,1ST-LINE TREATMENT
     Route: 065
  3. FLUOROURACIL [Suspect]
     Active Substance: FLUOROURACIL
     Indication: Colorectal cancer
     Dosage: UNK, 1ST-LINE TREATMENT
     Route: 065

REACTIONS (2)
  - Neutropenia [Unknown]
  - Neuropathy peripheral [Unknown]
